FAERS Safety Report 5291320-X (Version None)
Quarter: 2007Q1

REPORT INFORMATION
  Report Type: 
  Country: None (occurrence: None)
  Receive Date: 20070326
  Receipt Date: 20070320
  Transmission Date: 20070707
  Serious: Yes (Other)
  Sender: FDA-Public Use
  Company Number: AEGBR200700038

PATIENT
  Age: 77 Year
  Sex: Male

DRUGS (2)
  1. IMMUNE GLOBULIN INTRAVENOUS (HUMAN) [Suspect]
     Indication: PEMPHIGOID
  2. PREDNISOLONE [Concomitant]

REACTIONS (2)
  - MENINGITIS ASEPTIC [None]
  - RETINAL VEIN THROMBOSIS [None]
